FAERS Safety Report 8846089 (Version 1)
Quarter: 2012Q4

REPORT INFORMATION
  Report Type: 
  Country: GB (occurrence: GB)
  Receive Date: 20121017
  Receipt Date: 20121017
  Transmission Date: 20130627
  Serious: Yes (Hospitalization, Other)
  Sender: FDA-Public Use
  Company Number: PHHY2012GB089859

PATIENT
  Age: 75 Year
  Sex: Female

DRUGS (4)
  1. CITALOPRAM [Suspect]
  2. TRAMADOL [Interacting]
  3. METHYLENE BLUE [Interacting]
     Dosage: 5.5 mg/kg, UNK
     Route: 042
  4. FENTANYL [Concomitant]
     Indication: ANALGESIC THERAPY
     Dosage: 15 ug, UNK

REACTIONS (12)
  - Serotonin syndrome [Recovering/Resolving]
  - Confusional state [Recovering/Resolving]
  - Agitation [Recovering/Resolving]
  - Tachycardia [Unknown]
  - Depressed level of consciousness [Recovering/Resolving]
  - Pyrexia [Recovering/Resolving]
  - Hyperreflexia [Recovering/Resolving]
  - Myoclonus [Recovering/Resolving]
  - Respiratory distress [Recovering/Resolving]
  - Restless legs syndrome [Recovered/Resolved]
  - General physical health deterioration [Unknown]
  - Drug interaction [Unknown]
